FAERS Safety Report 18495641 (Version 6)
Quarter: 2024Q4

REPORT INFORMATION
  Report Type: Spontaneous
  Country: US (occurrence: US)
  Receive Date: 20201112
  Receipt Date: 20241115
  Transmission Date: 20250115
  Serious: Yes (Other)
  Sender: PFIZER
  Company Number: US-PFIZER INC-2020443354

PATIENT
  Age: 55 Year
  Sex: Male

DRUGS (1)
  1. XELJANZ XR [Suspect]
     Active Substance: TOFACITINIB CITRATE
     Dosage: 11 MG, DAILY

REACTIONS (6)
  - Rheumatoid arthritis [Unknown]
  - Lyme disease [Unknown]
  - Drug dependence [Unknown]
  - Pain [Unknown]
  - Abdominal pain upper [Unknown]
  - Gait disturbance [Unknown]
